FAERS Safety Report 5506711-9 (Version None)
Quarter: 2007Q4

REPORT INFORMATION
  Report Type: 
  Country: None (occurrence: None)
  Receive Date: 20071105
  Receipt Date: 20071024
  Transmission Date: 20080405
  Serious: Yes (Hospitalization)
  Sender: FDA-Public Use
  Company Number: US-ELI_LILLY_AND_COMPANY-US200710005945

PATIENT
  Sex: Male
  Weight: 85.261 kg

DRUGS (6)
  1. BYETTA [Suspect]
     Dosage: 5 UG, 2/D
     Route: 058
     Dates: start: 20070515, end: 20071015
  2. BYETTA [Suspect]
     Dosage: 5 UG, DAILY (1/D)
     Route: 058
     Dates: start: 20070515, end: 20071015
  3. LANTUS [Concomitant]
  4. ACTOS [Concomitant]
  5. METFORMIN [Concomitant]
  6. GLIMEPIRIDE [Concomitant]

REACTIONS (1)
  - PANCREATITIS ACUTE [None]
